FAERS Safety Report 10467507 (Version 3)
Quarter: 2015Q1

REPORT INFORMATION
  Report Type: Spontaneous
  Country: US (occurrence: US)
  Receive Date: 20140922
  Receipt Date: 20150326
  Transmission Date: 20150720
  Serious: Yes (Death, Hospitalization, Other)
  Sender: FDA-Public Use
  Company Number: US-009507513-1409USA009899

PATIENT
  Sex: Female
  Weight: 77.98 kg

DRUGS (1)
  1. JANUVIA [Suspect]
     Active Substance: SITAGLIPTIN PHOSPHATE
     Indication: TYPE 2 DIABETES MELLITUS
     Dosage: 100 MG, QD
     Route: 048
     Dates: start: 20080808, end: 20100512

REACTIONS (15)
  - Metastases to liver [Unknown]
  - Vision blurred [Recovered/Resolved]
  - Adverse event [Unknown]
  - Pancreatic carcinoma metastatic [Fatal]
  - Intracranial venous sinus thrombosis [Unknown]
  - Hypoaesthesia [Unknown]
  - Metastases to lung [Unknown]
  - Fibromyalgia [Unknown]
  - Metastases to abdominal wall [Unknown]
  - Fall [Unknown]
  - Dysphagia [Unknown]
  - Diabetes mellitus inadequate control [Unknown]
  - Nervous system disorder [Unknown]
  - Urinary tract infection [Unknown]
  - Impaired fasting glucose [Recovered/Resolved]

NARRATIVE: CASE EVENT DATE: 2009
